FAERS Safety Report 8278087-8 (Version None)
Quarter: 2012Q2

REPORT INFORMATION
  Report Type: 
  Country: None (occurrence: None)
  Receive Date: 20120412
  Receipt Date: 20110819
  Transmission Date: 20120825
  Serious: No
  Sender: FDA-Public Use
  Company Number: US-ASTRAZENECA-2009UW13842

PATIENT
  Age: 87 Year
  Sex: Female
  Weight: 81.6 kg

DRUGS (8)
  1. AVALIDE [Concomitant]
  2. NEXIUM [Suspect]
     Route: 048
  3. PLAVIX [Concomitant]
  4. LIPITOR [Concomitant]
  5. MUCINEX [Concomitant]
  6. XANAX [Concomitant]
  7. LEXAPRO [Concomitant]
  8. NORVASC [Concomitant]

REACTIONS (4)
  - ARTHRITIS [None]
  - HYPERTENSION [None]
  - MALAISE [None]
  - VOMITING [None]
